FAERS Safety Report 7995046-0 (Version None)
Quarter: 2011Q4

REPORT INFORMATION
  Report Type: 
  Country: None (occurrence: None)
  Receive Date: 20111220
  Receipt Date: 20111215
  Transmission Date: 20120403
  Serious: Yes (Other)
  Sender: FDA-Public Use
  Company Number: JP-PFIZER INC-2011307310

PATIENT
  Sex: Female

DRUGS (1)
  1. AROMASIN [Suspect]
     Indication: BREAST CANCER
     Dosage: UNK
     Route: 048
     Dates: start: 20100101

REACTIONS (5)
  - HAIR TEXTURE ABNORMAL [None]
  - METASTASES TO LUNG [None]
  - DIZZINESS [None]
  - PARAESTHESIA [None]
  - PAIN IN EXTREMITY [None]
